FAERS Safety Report 23460796 (Version 1)
Quarter: 2024Q1

REPORT INFORMATION
  Report Type: Spontaneous
  Country: US (occurrence: None)
  Receive Date: 20240130
  Receipt Date: 20240130
  Transmission Date: 20240409
  Serious: No
  Sender: FDA-Public Use
  Company Number: None

PATIENT
  Age: 36 Year
  Sex: Female
  Weight: 122.47 kg

DRUGS (2)
  1. COSENTYX [Suspect]
     Active Substance: SECUKINUMAB
     Indication: Rheumatoid arthritis
     Dosage: INJECT 300MG (1 PEN) SUBCUTANEOUSLY ONCE A WEEK FOR 5  WEEKS AS DIRECTED.?
     Route: 058
     Dates: start: 202311
  2. COSENTYX [Suspect]
     Active Substance: SECUKINUMAB
     Indication: Aromatic L-amino acid decarboxylase deficiency

REACTIONS (1)
  - COVID-19 [None]
